FAERS Safety Report 7627308-0 (Version None)
Quarter: 2011Q3

REPORT INFORMATION
  Report Type: 
  Country: None (occurrence: None)
  Receive Date: 20110714
  Receipt Date: 20110630
  Transmission Date: 20111222
  Serious: Yes (Hospitalization)
  Sender: FDA-Public Use
  Company Number: MPS1-1000483

PATIENT
  Age: 6 Month
  Sex: Male
  Weight: 8 kg

DRUGS (3)
  1. ANTIHISTAMINES [Concomitant]
  2. ACETAMINOPHEN [Concomitant]
  3. ALDURAZYME [Suspect]
     Indication: MUCOPOLYSACCHARIDOSIS I
     Dosage: 100 IU/KG, QW, INTRAVENOUS
     Route: 042

REACTIONS (9)
  - PAPULE [None]
  - OXYGEN SATURATION DECREASED [None]
  - INFUSION RELATED REACTION [None]
  - RASH [None]
  - SWELLING FACE [None]
  - RESPIRATORY DISTRESS [None]
  - ERYTHEMA [None]
  - DYSPNOEA [None]
  - DIARRHOEA [None]
